FAERS Safety Report 7802722 (Version 3)
Quarter: 2014Q1

REPORT INFORMATION
  Report Type: Spontaneous
  Country: JP (occurrence: JP)
  Receive Date: 20110207
  Receipt Date: 20140310
  Transmission Date: 20141002
  Serious: Yes (Death, Hospitalization)
  Sender: FDA-Public Use
  Company Number: PHHY2011JP06753

PATIENT
  Age: 81 Year
  Sex: Male

DRUGS (2)
  1. ZOLEDRONATE [Suspect]
     Indication: METASTASES TO BONE
     Dosage: 4 MG, UNK
     Route: 041
     Dates: start: 200904
  2. ZOLEDRONATE [Suspect]
     Dosage: 4 MG, PER MONTH
     Route: 042

REACTIONS (13)
  - Prostate cancer metastatic [Fatal]
  - Malignant neoplasm progression [Fatal]
  - Osteonecrosis of jaw [Recovering/Resolving]
  - Cellulitis [Unknown]
  - Impaired healing [Unknown]
  - Swelling [Recovered/Resolved]
  - Exposed bone in jaw [Unknown]
  - Osteitis [Unknown]
  - Pain in jaw [Unknown]
  - Malaise [Unknown]
  - Pyrexia [Unknown]
  - Purulent discharge [Recovering/Resolving]
  - Bacterial infection [Recovered/Resolved]
